FAERS Safety Report 6944629-5 (Version None)
Quarter: 2010Q3

REPORT INFORMATION
  Report Type: 
  Country: None (occurrence: None)
  Receive Date: 20100827
  Receipt Date: 20100817
  Transmission Date: 20110219
  Serious: Yes (Hospitalization, Other)
  Sender: FDA-Public Use
  Company Number: US-PFIZER INC-2010072345

PATIENT
  Sex: Female

DRUGS (1)
  1. CHANTIX [Suspect]
     Indication: SMOKING CESSATION THERAPY
     Dosage: ONE CARD OF 0.5MG AND THREE CARDS OF 1MG FOR ABOUT TWO WEEKS

REACTIONS (7)
  - ABNORMAL DREAMS [None]
  - DEPRESSION [None]
  - INTENTIONAL OVERDOSE [None]
  - LIVER INJURY [None]
  - PARANOIA [None]
  - POLYDIPSIA [None]
  - SUICIDE ATTEMPT [None]
